FAERS Safety Report 9165571 (Version 3)
Quarter: 2013Q3

REPORT INFORMATION
  Report Type: Spontaneous
  Country: US (occurrence: US)
  Receive Date: 20130315
  Receipt Date: 20130710
  Transmission Date: 20140515
  Serious: No
  Sender: FDA-Public Use
  Company Number: US-B.I. PHARMACEUTICALS,INC./RIDGEFIELD-2013-BI-06957BP

PATIENT
  Age: 88 Year
  Sex: Female
  Weight: 90 kg

DRUGS (1)
  1. COMBIVENT [Suspect]
     Indication: PULMONARY HYPERTENSION
     Dosage: 8 PUF
     Route: 055
     Dates: start: 201301

REACTIONS (2)
  - Therapeutic response decreased [Unknown]
  - Product quality issue [Unknown]
